FAERS Safety Report 19899330 (Version 1)
Quarter: 2021Q3

REPORT INFORMATION
  Report Type: Spontaneous
  Country: US (occurrence: US)
  Receive Date: 20210929
  Receipt Date: 20210929
  Transmission Date: 20211014
  Serious: Yes (Hospitalization)
  Sender: FDA-Public Use
  Company Number: None

PATIENT
  Sex: Male

DRUGS (5)
  1. BACTRIM [Concomitant]
     Active Substance: SULFAMETHOXAZOLE\TRIMETHOPRIM
  2. VIGABATRIN. [Suspect]
     Active Substance: VIGABATRIN
     Indication: BRONCHOPULMONARY DYSPLASIA
     Dosage: ?          QUANTITY:2 PACKETS;OTHER ROUTE:VIA J TUBE?
  3. ZONISAMIDE. [Concomitant]
     Active Substance: ZONISAMIDE
  4. NEXIUM [Concomitant]
     Active Substance: ESOMEPRAZOLE MAGNESIUM
  5. SABRIL [Concomitant]
     Active Substance: VIGABATRIN

REACTIONS (1)
  - Pulmonary haemorrhage [None]
